FAERS Safety Report 4708330-0 (Version None)
Quarter: 2005Q3

REPORT INFORMATION
  Report Type: 
  Country: None (occurrence: None)
  Receive Date: 20050705
  Receipt Date: 20050705
  Transmission Date: 20060218
  Serious: Yes (Hospitalization)
  Sender: FDA-Public Use
  Company Number: None

PATIENT
  Sex: Female
  Weight: 95.9 kg

DRUGS (1)
  1. LIPITOR [Suspect]
     Dosage: 10 MG QHS ORAL
     Route: 048

REACTIONS (2)
  - MUSCULAR WEAKNESS [None]
  - RENAL FAILURE ACUTE [None]
